FAERS Safety Report 6829180-5 (Version None)
Quarter: 2010Q3

REPORT INFORMATION
  Report Type: 
  Country: None (occurrence: None)
  Receive Date: 20100709
  Receipt Date: 20070302
  Transmission Date: 20110219
  Serious: No
  Sender: FDA-Public Use
  Company Number: US-PFIZER INC-2007017857

PATIENT
  Sex: Female
  Weight: 74.84 kg

DRUGS (4)
  1. CHANTIX [Suspect]
     Indication: SMOKING CESSATION THERAPY
     Dates: start: 20061101
  2. EFFEXOR XR [Interacting]
  3. ZOCOR [Concomitant]
  4. ACETYLSALICYLIC ACID [Concomitant]

REACTIONS (5)
  - DRUG INTERACTION [None]
  - HYPERSOMNIA [None]
  - INSOMNIA [None]
  - MIDDLE INSOMNIA [None]
  - SEDATION [None]
